FAERS Safety Report 7609913-0 (Version None)
Quarter: 2011Q3

REPORT INFORMATION
  Report Type: 
  Country: None (occurrence: None)
  Receive Date: 20110714
  Receipt Date: 20110703
  Transmission Date: 20111222
  Serious: Yes (Other)
  Sender: FDA-Public Use
  Company Number: US-BAXTER-2011BH022349

PATIENT

DRUGS (4)
  1. THALIDOMIDE [Concomitant]
     Indication: MULTIPLE MYELOMA
     Route: 065
  2. DEXAMETHASONE [Suspect]
     Indication: MULTIPLE MYELOMA
     Route: 065
  3. LENALIDOMIDE [Concomitant]
     Indication: MULTIPLE MYELOMA
     Route: 065
  4. ANTICOAGULANT [Concomitant]
     Indication: COAGULOPATHY
     Route: 065

REACTIONS (2)
  - FLUID OVERLOAD [None]
  - HYPERTENSIVE CRISIS [None]
